FAERS Safety Report 15233676 (Version 1)
Quarter: 2018Q3

REPORT INFORMATION
  Report Type: Spontaneous
  Country: FR (occurrence: FR)
  Receive Date: 20180802
  Receipt Date: 20180802
  Transmission Date: 20181010
  Serious: Yes (Hospitalization)
  Sender: FDA-Public Use
  Company Number: FR-LEADIANT BIOSCIENCES INC-2018STPI000434

PATIENT
  Age: 79 Year
  Sex: Female
  Weight: 52 kg

DRUGS (4)
  1. VINCRISTIN TEVA [Concomitant]
     Active Substance: VINCRISTINE
     Indication: CENTRAL NERVOUS SYSTEM LYMPHOMA
     Dosage: 1.95 MG, 1
     Route: 042
     Dates: start: 20170509, end: 20170509
  2. MATULANE [Suspect]
     Active Substance: PROCARBAZINE HYDROCHLORIDE
     Indication: HODGKIN^S DISEASE
     Dosage: 1050 MG, UNK
     Dates: start: 20170509, end: 20170512
  3. NATULAN [Suspect]
     Active Substance: PROCARBAZINE HYDROCHLORIDE
     Indication: HODGKIN^S DISEASE
     Dosage: 1050 MG, 1
     Route: 048
     Dates: start: 20170509, end: 20170512
  4. METHOTREXATE MYLAN [Concomitant]
     Active Substance: METHOTREXATE SODIUM
     Indication: CENTRAL NERVOUS SYSTEM LYMPHOMA
     Dosage: 2700 MG, 1
     Route: 042
     Dates: start: 20170509

REACTIONS (1)
  - Acute kidney injury [Recovering/Resolving]

NARRATIVE: CASE EVENT DATE: 20170510
